FAERS Safety Report 23058760 (Version 2)
Quarter: 2023Q4

REPORT INFORMATION
  Report Type: Spontaneous
  Country: US (occurrence: US)
  Receive Date: 20231012
  Receipt Date: 20231023
  Transmission Date: 20240110
  Serious: Yes (Hospitalization)
  Sender: FDA-Public Use
  Company Number: US-TEVA-2023-US-2933031

PATIENT
  Sex: Male

DRUGS (3)
  1. EPINEPHRINE [Suspect]
     Active Substance: EPINEPHRINE
     Indication: Local anaesthesia
     Dosage: RECEIVED 10ML, 50 MCG
     Route: 050
  2. BUPIVACAINE [Suspect]
     Active Substance: BUPIVACAINE
     Indication: Local anaesthesia
     Dosage: RECEIVED 10ML, 25 MG
     Route: 050
  3. GENTAMICIN [Suspect]
     Active Substance: GENTAMICIN
     Indication: Infection prophylaxis
     Route: 050

REACTIONS (3)
  - Local anaesthetic systemic toxicity [Recovering/Resolving]
  - Blood pressure decreased [Recovering/Resolving]
  - Wrong product administered [Unknown]
